FAERS Safety Report 10225641 (Version 1)
Quarter: 2014Q2

REPORT INFORMATION
  Report Type: Spontaneous
  Country: CA (occurrence: CA)
  Receive Date: 20140609
  Receipt Date: 20140609
  Transmission Date: 20141212
  Serious: Yes (Other)
  Sender: FDA-Public Use
  Company Number: CA-PFIZER INC-2014155505

PATIENT
  Age: 72 Year
  Sex: Female
  Weight: 70 kg

DRUGS (19)
  1. AZITHROMYCIN [Suspect]
     Indication: ATYPICAL MYCOBACTERIAL INFECTION
     Dosage: 250MG, UNK
  2. AZITHROMYCIN [Suspect]
     Indication: EVIDENCE BASED TREATMENT
  3. ETHAMBUTOL [Suspect]
     Indication: ATYPICAL MYCOBACTERIAL INFECTION
     Dosage: 1600 MG, DAILY ((23 MG/KG) FOR 2 MONTHS
  4. ETHAMBUTOL [Suspect]
     Indication: EVIDENCE BASED TREATMENT
     Dosage: 1300 MG, DAILY (19 MG/KG/D)
  5. ISONIAZID [Suspect]
     Indication: ATYPICAL MYCOBACTERIAL INFECTION
     Dosage: 300MG, UNK
  6. ISONIAZID [Suspect]
     Indication: EVIDENCE BASED TREATMENT
  7. RIFAMPIN [Concomitant]
     Indication: ATYPICAL MYCOBACTERIAL INFECTION
     Dosage: 600MG, UNK
  8. RIFAMPIN [Concomitant]
     Indication: EVIDENCE BASED TREATMENT
  9. VITAMIN B6 [Concomitant]
     Indication: ATYPICAL MYCOBACTERIAL INFECTION
     Dosage: 25MG, UNK
  10. VITAMIN B6 [Concomitant]
     Indication: EVIDENCE BASED TREATMENT
  11. ASPIRIN [Concomitant]
     Dosage: UNK
  12. AMLODIPINE [Concomitant]
     Dosage: UNK
  13. ATORVASTATIN [Concomitant]
     Dosage: UNK
  14. RAMIPRIL [Concomitant]
     Dosage: UNK
  15. METOPROLOL [Concomitant]
     Dosage: UNK
  16. HYDROCHLOROTHIAZIDE [Concomitant]
     Dosage: UNK
  17. TIOTROPIUM BROMIDE [Concomitant]
     Dosage: UNK
  18. BUDESONIDE/FORMOTEROL FUMARATE [Concomitant]
     Dosage: UNK
  19. ALBUTEROL [Concomitant]
     Dosage: UNK

REACTIONS (2)
  - Hemianopia [Recovering/Resolving]
  - Toxicity to various agents [Unknown]
